FAERS Safety Report 8161061-X (Version None)
Quarter: 2012Q1

REPORT INFORMATION
  Report Type: 
  Country: None (occurrence: None)
  Receive Date: 20120224
  Receipt Date: 20120221
  Transmission Date: 20120608
  Serious: Yes (Death, Hospitalization)
  Sender: FDA-Public Use
  Company Number: PL-BRISTOL-MYERS SQUIBB COMPANY-16332371

PATIENT
  Age: 43 Year
  Sex: Male
  Weight: 74 kg

DRUGS (2)
  1. MORPHINE [Concomitant]
  2. PACLITAXEL [Suspect]
     Indication: GASTRIC CANCER
     Dosage: LAST DOSE 09DEC11 INTERR 22DEC11 DAY 1 8 AND 15 EVERY 4 WK CYCLE 25NOV11-22DEC11(28 DAYS)
     Route: 042
     Dates: start: 20111125

REACTIONS (2)
  - DEHYDRATION [None]
  - BRONCHOPNEUMONIA [None]
